FAERS Safety Report 8905727 (Version 2)
Quarter: 2012Q4

REPORT INFORMATION
  Report Type: 
  Country: US (occurrence: US)
  Receive Date: 20121113
  Receipt Date: 20121219
  Transmission Date: 20130627
  Serious: Yes (Hospitalization)
  Sender: FDA-Public Use
  Company Number: US-US-EMD SERONO, INC.-7173006

PATIENT
  Age: 68 None
  Sex: Male
  Weight: 128 kg

DRUGS (3)
  1. REBIF [Suspect]
     Indication: MULTIPLE SCLEROSIS
     Route: 058
     Dates: start: 20040915
  2. UNSPECIFIED BLOOD PRESSURE MEDICATION [Concomitant]
     Indication: HYPERTENSION
  3. UNSPECIFIED ANTIDEPRESSANT [Concomitant]
     Indication: DEPRESSION

REACTIONS (5)
  - Urinary tract infection [Recovered/Resolved]
  - Chest pain [Recovered/Resolved]
  - Hypertension [Recovering/Resolving]
  - Multiple sclerosis relapse [Recovered/Resolved]
  - Depression [Recovering/Resolving]
